FAERS Safety Report 21816619 (Version 1)
Quarter: 2023Q1

REPORT INFORMATION
  Report Type: Report from Study
  Country: US (occurrence: US)
  Receive Date: 20230104
  Receipt Date: 20230104
  Transmission Date: 20230417
  Serious: No
  Sender: FDA-Public Use
  Company Number: US-ABBVIE-4222958

PATIENT
  Sex: Female

DRUGS (1)
  1. SKYRIZI [Suspect]
     Active Substance: RISANKIZUMAB-RZAA
     Indication: Psoriasis
     Dosage: FIRST ADMIN DATE: MAY 2022?FREQUENCY TEXT: WEEK 4. THEN EVERY 12 WEEKS
     Route: 058

REACTIONS (2)
  - Therapeutic response shortened [Not Recovered/Not Resolved]
  - Psoriasis [Not Recovered/Not Resolved]
